FAERS Safety Report 4697742-X (Version None)
Quarter: 2005Q2

REPORT INFORMATION
  Report Type: 
  Country: None (occurrence: None)
  Receive Date: 20050619
  Receipt Date: 20050619
  Transmission Date: 20051028
  Serious: No
  Sender: FDA-Public Use
  Company Number: None

PATIENT
  Sex: Female
  Weight: 71.6683 kg

DRUGS (2)
  1. PERCOCET [Suspect]
     Indication: BACK PAIN
     Dosage: 5/325 1 PO Q 8HR PRN
     Route: 048
  2. PERCOCET [Suspect]
     Indication: RADICULAR PAIN
     Dosage: 5/325 1 PO Q 8HR PRN
     Route: 048

REACTIONS (3)
  - ABDOMINAL DISCOMFORT [None]
  - DRUG EFFECT DECREASED [None]
  - THERAPEUTIC RESPONSE UNEXPECTED WITH DRUG SUBSTITUTION [None]
